FAERS Safety Report 9293409 (Version 1)
Quarter: 2013Q2

REPORT INFORMATION
  Report Type: Spontaneous
  Country: US (occurrence: US)
  Receive Date: 20130516
  Receipt Date: 20130516
  Transmission Date: 20140414
  Serious: Yes (Hospitalization)
  Sender: FDA-Public Use
  Company Number: US-MERCK-1305USA005427

PATIENT
  Age: 53 Year
  Sex: Male

DRUGS (3)
  1. SAPHRIS [Suspect]
     Indication: BIPOLAR I DISORDER
     Dosage: 10 MG, BID
     Route: 060
     Dates: end: 20130402
  2. SAPHRIS [Suspect]
     Dosage: 10 MG, BID
     Route: 060
     Dates: start: 2013
  3. SAPHRIS [Suspect]
     Dosage: 10 MG IN THE MORNING, 20 MG IN THE EVENING
     Route: 060
     Dates: start: 2013, end: 201305

REACTIONS (6)
  - Mania [Unknown]
  - Insomnia [Unknown]
  - Psychotic disorder [Unknown]
  - Drug ineffective [Unknown]
  - Self-medication [Unknown]
  - Overdose [Unknown]
